FAERS Safety Report 9916230 (Version 1)
Quarter: 2014Q1

REPORT INFORMATION
  Report Type: Spontaneous
  Country: GB (occurrence: None)
  Receive Date: 20140219
  Receipt Date: 20140219
  Transmission Date: 20141002
  Serious: Yes (Hospitalization)
  Sender: FDA-Public Use
  Company Number: SP07504

PATIENT
  Age: 15 Year
  Sex: Male
  Weight: 39.9 kg

DRUGS (5)
  1. XIFAXAN [Suspect]
     Indication: CROHN^S DISEASE
     Dosage: 30 ML (10 ML, 3 IN 1 D), ORAL
     Route: 048
     Dates: start: 20131125, end: 20140116
  2. AZATHIOPRINE [Concomitant]
  3. INFLIXIMAB [Concomitant]
  4. RANITIDINE [Concomitant]
  5. VITAMIN D [Concomitant]

REACTIONS (3)
  - Off label use [None]
  - Gastric ulcer [None]
  - Upper gastrointestinal haemorrhage [None]
